FAERS Safety Report 22213521 (Version 1)
Quarter: 2023Q2

REPORT INFORMATION
  Report Type: Spontaneous
  Country: US (occurrence: None)
  Receive Date: 20230414
  Receipt Date: 20230414
  Transmission Date: 20230721
  Serious: Yes (Hospitalization)
  Sender: FDA-Public Use
  Company Number: None

PATIENT
  Sex: Male
  Weight: 61.4 kg

DRUGS (1)
  1. CISPLATIN [Suspect]
     Active Substance: CISPLATIN
     Dates: end: 20220811

REACTIONS (5)
  - Candida infection [None]
  - Radiation necrosis [None]
  - Pharyngeal necrosis [None]
  - Tonsillar ulcer [None]
  - SARS-CoV-2 test positive [None]

NARRATIVE: CASE EVENT DATE: 20230222
